FAERS Safety Report 7449518-8 (Version None)
Quarter: 2011Q2

REPORT INFORMATION
  Report Type: 
  Country: None (occurrence: None)
  Receive Date: 20110502
  Receipt Date: 20110408
  Transmission Date: 20111010
  Serious: Yes (Hospitalization)
  Sender: FDA-Public Use
  Company Number: JP-BAYER-2011-023544

PATIENT
  Age: 86 Year
  Sex: Female
  Weight: 44 kg

DRUGS (1)
  1. ASPIRIN [Suspect]
     Indication: CEREBRAL INFARCTION
     Dosage: 100 MG, QD
     Route: 048
     Dates: start: 20081015, end: 20110311

REACTIONS (3)
  - HAEMORRHAGE SUBCUTANEOUS [None]
  - MEDIASTINAL HAEMATOMA [None]
  - EAR HAEMORRHAGE [None]
